FAERS Safety Report 16685104 (Version 1)
Quarter: 2019Q3

REPORT INFORMATION
  Report Type: Spontaneous
  Country: GB (occurrence: GB)
  Receive Date: 20190808
  Receipt Date: 20190808
  Transmission Date: 20191004
  Serious: Yes (Other)
  Sender: FDA-Public Use
  Company Number: GB-TEVA-2019-GB-1090133

PATIENT
  Age: 43 Year
  Sex: Male
  Weight: 106 kg

DRUGS (1)
  1. NAPROXEN. [Suspect]
     Active Substance: NAPROXEN
     Dosage: 500 MILLIGRAM
     Dates: start: 20181114

REACTIONS (2)
  - Face oedema [Recovered/Resolved]
  - Swelling [Unknown]
